FAERS Safety Report 6697585-1 (Version None)
Quarter: 2010Q2

REPORT INFORMATION
  Report Type: 
  Country: None (occurrence: None)
  Receive Date: 20100426
  Receipt Date: 20091026
  Transmission Date: 20101027
  Serious: No
  Sender: FDA-Public Use
  Company Number: US-ABBOTT-09P-163-0606068-00

PATIENT
  Age: 40 Year
  Sex: Male

DRUGS (2)
  1. AZMACORT [Suspect]
     Indication: BRONCHITIS
     Dosage: TWO PUFFS DAILY AS NEEDED FOR BRONCHITIS
     Route: 055
     Dates: start: 20050101, end: 20091001
  2. PRILOSEC [Concomitant]
     Indication: GASTROOESOPHAGEAL REFLUX DISEASE

REACTIONS (1)
  - EXPIRED DRUG ADMINISTERED [None]
